FAERS Safety Report 6718466-0 (Version None)
Quarter: 2010Q2

REPORT INFORMATION
  Report Type: 
  Country: None (occurrence: None)
  Receive Date: 20100510
  Receipt Date: 20100503
  Transmission Date: 20101027
  Serious: Yes (Life-Threatening, Hospitalization, Other)
  Sender: FDA-Public Use
  Company Number: PHHY2010DE29182

PATIENT
  Age: 49 Year
  Sex: Female
  Weight: 98 kg

DRUGS (10)
  1. SANDIMMUNE [Suspect]
     Indication: RENAL TRANSPLANT
     Dosage: 100 MG
     Route: 048
     Dates: start: 20070829
  2. SANDIMMUNE [Interacting]
     Dosage: 50 MG
  3. SANDIMMUNE [Interacting]
     Dosage: 25 MG
  4. SIMVASTATIN [Interacting]
     Indication: HYPERLIPIDAEMIA
     Dosage: 40 MG
     Route: 048
     Dates: start: 20070829, end: 20090922
  5. LEVOTHYROXINE SODIUM [Concomitant]
     Indication: HYPOTHYROIDISM
     Dosage: 25 UG
     Route: 048
     Dates: start: 20070829
  6. CELLCEPT [Concomitant]
     Indication: RENAL TRANSPLANT
     Dosage: 1000 MG
     Route: 048
     Dates: start: 20070829
  7. BISOPROLOL [Concomitant]
     Indication: HYPERTENSION
     Dosage: 10 MG
     Route: 048
     Dates: start: 20070829
  8. FUROSEMID [Concomitant]
     Indication: HYPERTENSION
     Dosage: 40 MG
     Route: 048
     Dates: start: 20070829
  9. ACETYLSALICYLIC ACID [Concomitant]
     Indication: MYOCARDIAL INFARCTION
     Dosage: 100 MG
     Route: 048
     Dates: start: 20070829
  10. OMEPRAZOLE [Concomitant]
     Indication: GASTRIC ULCER
     Dosage: 20 MG
     Route: 048
     Dates: start: 20070829, end: 20090923

REACTIONS (13)
  - ABDOMINAL PAIN UPPER [None]
  - BEDRIDDEN [None]
  - DRUG INTERACTION [None]
  - GAIT DISTURBANCE [None]
  - HAEMODIALYSIS [None]
  - HEPATIC ENZYME INCREASED [None]
  - MUSCLE FIBROSIS [None]
  - NAUSEA [None]
  - OSTEOSYNTHESIS [None]
  - PYREXIA [None]
  - QUADRIPARESIS [None]
  - RHABDOMYOLYSIS [None]
  - VOMITING [None]
